FAERS Safety Report 24459186 (Version 1)
Quarter: 2024Q4

REPORT INFORMATION
  Report Type: Spontaneous
  Country: MM (occurrence: MM)
  Receive Date: 20241018
  Receipt Date: 20241018
  Transmission Date: 20250115
  Serious: No
  Sender: ROCHE
  Company Number: MM-ROCHE-3524046

PATIENT
  Age: 81 Year
  Sex: Female

DRUGS (4)
  1. MABTHERA [Suspect]
     Active Substance: RITUXIMAB
     Indication: Lymphoma
     Dosage: DOSE: 500MG/50ML, SUBSEQUENT DOSES RECEIVED ON 23/MAR/2024 AND ON 12/APR/2024.
     Route: 041
     Dates: start: 20240308
  2. MABTHERA [Suspect]
     Active Substance: RITUXIMAB
     Route: 041
  3. MABTHERA [Suspect]
     Active Substance: RITUXIMAB
     Route: 041
  4. MABTHERA [Suspect]
     Active Substance: RITUXIMAB
     Route: 041

REACTIONS (2)
  - Off label use [Unknown]
  - No adverse event [Unknown]

NARRATIVE: CASE EVENT DATE: 20240308
